FAERS Safety Report 16965799 (Version 1)
Quarter: 2019Q4

REPORT INFORMATION
  Report Type: Spontaneous
  Country: US (occurrence: US)
  Receive Date: 20190910
  Receipt Date: 20190910
  Transmission Date: 20200122
  Serious: No
  Sender: FDA-Public Use
  Company Number: None

PATIENT
  Age: 77 Year
  Sex: Male

DRUGS (1)
  1. JADENU [Suspect]
     Active Substance: DEFERASIROX
     Indication: LEUKAEMIA
     Route: 058
     Dates: start: 20190805

REACTIONS (1)
  - Oesophagitis [None]

NARRATIVE: CASE EVENT DATE: 20190910
